FAERS Safety Report 8924481 (Version 1)
Quarter: 2012Q4

REPORT INFORMATION
  Report Type: 
  Country: AU (occurrence: AU)
  Receive Date: 20121127
  Receipt Date: 20121127
  Transmission Date: 20130627
  Serious: Yes (Hospitalization)
  Sender: FDA-Public Use
  Company Number: AU-GE HEALTHCARE MEDICAL DIAGNOSTICS-OMPQ-NO-1211S-1243

PATIENT
  Age: 62 Year
  Sex: Female
  Weight: 54 kg

DRUGS (2)
  1. OMNIPAQUE [Suspect]
     Indication: PAIN
     Route: 042
     Dates: start: 20121120, end: 20121120
  2. OMNIPAQUE [Suspect]
     Indication: DIAGNOSTIC PROCEDURE

REACTIONS (3)
  - Pharyngeal oedema [Recovered/Resolved]
  - Rash macular [Recovered/Resolved]
  - Stevens-Johnson syndrome [Recovered/Resolved]
